FAERS Safety Report 6251592-1 (Version None)
Quarter: 2009Q2

REPORT INFORMATION
  Report Type: 
  Country: None (occurrence: None)
  Receive Date: 20090630
  Receipt Date: 20090618
  Transmission Date: 20091009
  Serious: Yes (Other)
  Sender: FDA-Public Use
  Company Number: US-BAYER-200911866BCC

PATIENT
  Sex: Female

DRUGS (1)
  1. NEO-SYNEPHRINE NIGHTTIME SPRAY [Suspect]
     Indication: NASAL CONGESTION
     Dosage: CONSUMER USED THE PRODUCT ON 2 UNKNOWN DATES
     Route: 045
     Dates: start: 20090601

REACTIONS (2)
  - ANOSMIA [None]
  - PAROSMIA [None]
